FAERS Safety Report 4546699-0 (Version None)
Quarter: 2005Q1

REPORT INFORMATION
  Report Type: 
  Country: None (occurrence: None)
  Receive Date: 20050105
  Receipt Date: 20041220
  Transmission Date: 20050727
  Serious: Yes (Other)
  Sender: FDA-Public Use
  Company Number: S04-DEN-08095-01

PATIENT
  Age: 28 Year
  Sex: Female

DRUGS (4)
  1. CITALOPRAM HYDROBROMIDE [Suspect]
     Indication: DEPRESSION
     Dosage: 20 MG QD PO
     Route: 048
     Dates: end: 20041104
  2. THIOPENTAL SODIUM [Suspect]
     Indication: INDUCTION AND MAINTENANCE OF ANAESTHESIA
     Dosage: 500 MG ONCE IV
     Route: 042
     Dates: start: 20041104, end: 20041104
  3. CONETRACEPTIVE PILLS (ORAL CONTRACEPTIVE NOS) [Concomitant]
  4. NON-PRESCRIPTION PAIN KILLER (NOS) [Concomitant]

REACTIONS (4)
  - ANAESTHETIC COMPLICATION [None]
  - DRUG INTERACTION [None]
  - MUSCLE RIGIDITY [None]
  - MUSCLE SPASMS [None]
